FAERS Safety Report 4294737-5 (Version None)
Quarter: 2004Q1

REPORT INFORMATION
  Report Type: 
  Country: None (occurrence: None)
  Receive Date: 20040211
  Receipt Date: 20040209
  Transmission Date: 20041129
  Serious: Yes (Life-Threatening)
  Sender: FDA-Public Use
  Company Number: JP-JNJFOC-20040103226

PATIENT
  Age: 80 Year
  Sex: Female

DRUGS (16)
  1. LEVOFLOXACIN [Suspect]
     Indication: PHARYNGITIS
     Dosage: 300 MG , ORAL
     Route: 048
     Dates: start: 20031111, end: 20031114
  2. LEVOFLOXACIN [Suspect]
     Indication: PRODUCTIVE COUGH
     Dosage: 300 MG , ORAL
     Route: 048
     Dates: start: 20031111, end: 20031114
  3. SOLANTAL (TIARAMIDE HYDROCHLORIDE) [Suspect]
     Dosage: ORAL
     Route: 048
     Dates: start: 20031111
  4. COFMESIN (BROMHEXINE HYDROCHLORIDE) [Concomitant]
  5. RESPLEN (EPRAZINONE HYDROCHLORIDE) [Concomitant]
  6. SORNILART (ISOSORBIDE DINITRATE) [Concomitant]
  7. SOLON (SOFALCONE) [Concomitant]
  8. ALDACTONE [Concomitant]
  9. ALFAROL (ALFACALCIDOL) [Concomitant]
  10. PARAMIDIN (BUCOLOME) [Concomitant]
  11. EXCELASE (EXCELASE) [Concomitant]
  12. WARFARIN SODIUM [Concomitant]
  13. SELBEX (TEPRENONE) [Concomitant]
  14. ALTAT (ROXATIDINE ACETATE HYDROCHLORIDE) [Concomitant]
  15. PIMENOL (PIRMENOL HYDROCHLORIDE) [Concomitant]
  16. MAGNESIUM OXIDE [Concomitant]

REACTIONS (8)
  - CARDIOMYOPATHY [None]
  - DIFFICULTY IN WALKING [None]
  - HYPERHIDROSIS [None]
  - HYPOGLYCAEMIA [None]
  - LOSS OF CONSCIOUSNESS [None]
  - PANIC REACTION [None]
  - TREATMENT NONCOMPLIANCE [None]
  - TREMOR [None]
